FAERS Safety Report 19839398 (Version 1)
Quarter: 2021Q3

REPORT INFORMATION
  Report Type: Spontaneous
  Country: US (occurrence: US)
  Receive Date: 20210914
  Receipt Date: 20210914
  Transmission Date: 20211014
  Serious: Yes (Hospitalization)
  Sender: FDA-Public Use
  Company Number: None

PATIENT
  Sex: Female

DRUGS (16)
  1. XOLAIR [Suspect]
     Active Substance: OMALIZUMAB
     Indication: ASTHMA
     Route: 058
     Dates: start: 20170711
  2. OCEAN NASAL [Concomitant]
  3. EXCEDRIN [Concomitant]
     Active Substance: ACETAMINOPHEN\ASPIRIN\CAFFEINE
  4. ESCITALOPRAM [Concomitant]
     Active Substance: ESCITALOPRAM OXALATE
  5. ALBUTEROL. [Concomitant]
     Active Substance: ALBUTEROL
  6. LEVOTHYROXIN [Concomitant]
     Active Substance: LEVOTHYROXINE
  7. MONTELUKAST [Concomitant]
     Active Substance: MONTELUKAST SODIUM
  8. FLUTICASONE. [Concomitant]
     Active Substance: FLUTICASONE
  9. METHOCARBAM [Suspect]
     Active Substance: METHOCARBAMOL
  10. PREDNISONE. [Concomitant]
     Active Substance: PREDNISONE
  11. BREO ELLIPTA INH [Concomitant]
  12. TYLENOL [Concomitant]
     Active Substance: ACETAMINOPHEN
  13. MUCINEX [Concomitant]
     Active Substance: GUAIFENESIN
  14. AUGMENTIN [Concomitant]
     Active Substance: AMOXICILLIN\CLAVULANATE POTASSIUM
  15. DILTIAZEM. [Concomitant]
     Active Substance: DILTIAZEM
  16. SINGULAIR [Concomitant]
     Active Substance: MONTELUKAST SODIUM

REACTIONS (1)
  - Spinal operation [None]
